APPROVED DRUG PRODUCT: LIDOCAINE HYDROCHLORIDE
Active Ingredient: LIDOCAINE HYDROCHLORIDE
Strength: 4%
Dosage Form/Route: SOLUTION;TOPICAL
Application: A216250 | Product #001 | TE Code: AT
Applicant: NOVITIUM PHARMA LLC
Approved: Mar 23, 2022 | RLD: No | RS: No | Type: RX